FAERS Safety Report 4452273-7 (Version None)
Quarter: 2004Q3

REPORT INFORMATION
  Report Type: 
  Country: None (occurrence: None)
  Receive Date: 20040917
  Receipt Date: 20040908
  Transmission Date: 20050211
  Serious: Yes (Hospitalization)
  Sender: FDA-Public Use
  Company Number: DE-BRISTOL-MYERS SQUIBB COMPANY-12694741

PATIENT
  Age: 57 Year
  Sex: Female
  Weight: 50 kg

DRUGS (3)
  1. TAXOL [Suspect]
     Indication: OVARIAN CANCER
     Dosage: THERAPY DATES: 26-APR-2004 TO 08-JUL-2004
     Route: 042
     Dates: start: 20040708, end: 20040708
  2. RIBOCARBO [Suspect]
     Indication: OVARIAN CANCER
     Dosage: THERAPY DATES: 26-APR-2004 TO 08-JUL-2004
     Route: 042
     Dates: start: 20040708, end: 20040708
  3. GEMZAR [Suspect]
     Indication: OVARIAN CANCER
     Dosage: THERAPY DATES: 26-APR-2004 TO 08-JUL-2004
     Route: 042
     Dates: start: 20040708, end: 20040708

REACTIONS (1)
  - CONSTIPATION [None]
